FAERS Safety Report 7678186 (Version 3)
Quarter: 2014Q1

REPORT INFORMATION
  Report Type: Report from Study
  Country: DE (occurrence: DE)
  Receive Date: 20101122
  Receipt Date: 20140117
  Transmission Date: 20141002
  Serious: Yes (Hospitalization)
  Sender: FDA-Public Use
  Company Number: DE-JNJFOC-20101104430

PATIENT
  Age: 63 Year
  Sex: Female
  Weight: 70 kg

DRUGS (2)
  1. STELARA [Suspect]
     Indication: PSORIASIS
     Dosage: AFTER FIRST ADMINISTRATION NEXT ADMINISTRATION AFTER  4 WEEKS AND THAN EVERY THREE MONTHS
     Route: 058
     Dates: start: 200910, end: 20100816
  2. SIMVASTATIN [Concomitant]
     Route: 048

REACTIONS (1)
  - Myocardial infarction [Not Recovered/Not Resolved]
